FAERS Safety Report 25535688 (Version 2)
Quarter: 2025Q3

REPORT INFORMATION
  Report Type: Spontaneous
  Country: US (occurrence: US)
  Receive Date: 20250709
  Receipt Date: 20250718
  Transmission Date: 20251021
  Serious: No
  Sender: MYLAN
  Company Number: US-MYLANLABS-2025M1054725

PATIENT
  Sex: Female
  Weight: 76.2 kg

DRUGS (16)
  1. ESTRADIOL TRANSDERMAL SYSTEM [Suspect]
     Active Substance: ESTRADIOL
     Indication: Menopause
     Dosage: 0.1 MILLIGRAM, QD (PER DAY, TWICE WEEKLY)
     Dates: end: 202506
  2. ESTRADIOL TRANSDERMAL SYSTEM [Suspect]
     Active Substance: ESTRADIOL
     Dosage: 0.1 MILLIGRAM, QD (PER DAY, TWICE WEEKLY)
     Route: 062
     Dates: end: 202506
  3. ESTRADIOL TRANSDERMAL SYSTEM [Suspect]
     Active Substance: ESTRADIOL
     Dosage: 0.1 MILLIGRAM, QD (PER DAY, TWICE WEEKLY)
     Route: 062
     Dates: end: 202506
  4. ESTRADIOL TRANSDERMAL SYSTEM [Suspect]
     Active Substance: ESTRADIOL
     Dosage: 0.1 MILLIGRAM, QD (PER DAY, TWICE WEEKLY)
     Dates: end: 202506
  5. PROGESTERONE [Concomitant]
     Active Substance: PROGESTERONE
     Indication: Menopause
  6. PROGESTERONE [Concomitant]
     Active Substance: PROGESTERONE
     Route: 065
  7. PROGESTERONE [Concomitant]
     Active Substance: PROGESTERONE
     Route: 065
  8. PROGESTERONE [Concomitant]
     Active Substance: PROGESTERONE
  9. TESTOSTERONE [Concomitant]
     Active Substance: TESTOSTERONE
     Indication: Menopause
  10. TESTOSTERONE [Concomitant]
     Active Substance: TESTOSTERONE
     Route: 065
  11. TESTOSTERONE [Concomitant]
     Active Substance: TESTOSTERONE
     Route: 065
  12. TESTOSTERONE [Concomitant]
     Active Substance: TESTOSTERONE
  13. DUPIXENT [Concomitant]
     Active Substance: DUPILUMAB
     Indication: Asthma
  14. DUPIXENT [Concomitant]
     Active Substance: DUPILUMAB
     Route: 065
  15. DUPIXENT [Concomitant]
     Active Substance: DUPILUMAB
     Route: 065
  16. DUPIXENT [Concomitant]
     Active Substance: DUPILUMAB

REACTIONS (3)
  - Menopausal symptoms [Unknown]
  - Product substitution issue [Unknown]
  - Product adhesion issue [Unknown]

NARRATIVE: CASE EVENT DATE: 20250101
